FAERS Safety Report 7216606-0 (Version None)
Quarter: 2011Q1

REPORT INFORMATION
  Report Type: 
  Country: None (occurrence: None)
  Receive Date: 20110110
  Receipt Date: 20101230
  Transmission Date: 20110831
  Serious: Yes (Hospitalization)
  Sender: FDA-Public Use
  Company Number: 2007BI018687

PATIENT
  Age: 64 Year
  Sex: Female
  Weight: 46 kg

DRUGS (4)
  1. BLOOD PRESSURE MEDICATION (NOS) [Concomitant]
     Indication: HYPERTENSION
     Route: 048
     Dates: start: 19970101
  2. AVONEX [Suspect]
     Route: 030
     Dates: start: 20000101, end: 20030101
  3. AVONEX [Suspect]
     Indication: MULTIPLE SCLEROSIS
     Route: 030
     Dates: start: 19970101, end: 19990101
  4. AVONEX [Suspect]
     Route: 030
     Dates: start: 20030101

REACTIONS (8)
  - MENTAL IMPAIRMENT [None]
  - GAIT DISTURBANCE [None]
  - FEELING ABNORMAL [None]
  - FEMUR FRACTURE [None]
  - MULTIPLE SCLEROSIS RELAPSE [None]
  - DEPRESSION [None]
  - FALL [None]
  - PATELLA FRACTURE [None]
